FAERS Safety Report 6762367-9 (Version None)
Quarter: 2010Q2

REPORT INFORMATION
  Report Type: 
  Country: None (occurrence: None)
  Receive Date: 20100609
  Receipt Date: 20100531
  Transmission Date: 20101027
  Serious: Yes (Hospitalization)
  Sender: FDA-Public Use
  Company Number: CO-ROCHE-706549

PATIENT
  Sex: Female

DRUGS (5)
  1. CELLCEPT [Suspect]
     Indication: LIVER TRANSPLANT
     Dosage: FREQUENCY: DAILY.
     Route: 048
     Dates: start: 20070620
  2. CAPTOPRIL [Concomitant]
     Route: 048
  3. LOSARTAN POTASSIUM [Concomitant]
     Route: 048
  4. METOPROLOL TARTRATE [Concomitant]
     Dosage: FREQUENCY: QD.
     Route: 048
  5. CYCLOSPORINE [Concomitant]
     Indication: LIVER TRANSPLANT
     Dosage: FREQUENCY: QD
     Route: 048

REACTIONS (2)
  - CEREBROVASCULAR ACCIDENT [None]
  - DENGUE FEVER [None]
